FAERS Safety Report 4860257-X (Version None)
Quarter: 2005Q4

REPORT INFORMATION
  Report Type: 
  Country: None (occurrence: None)
  Receive Date: 20051215
  Receipt Date: 20051203
  Transmission Date: 20060501
  Serious: Yes (Hospitalization)
  Sender: FDA-Public Use
  Company Number: 2005S1011676

PATIENT
  Age: 39 Year
  Sex: Male
  Weight: 72.5755 kg

DRUGS (1)
  1. LORAZEPAM [Suspect]
     Indication: DEPRESSION
     Dosage: 0.5 MG; ORAL
     Route: 048
     Dates: start: 20030607

REACTIONS (2)
  - INTENTIONAL OVERDOSE [None]
  - MEMORY IMPAIRMENT [None]
